FAERS Safety Report 14680341 (Version 1)
Quarter: 2018Q1

REPORT INFORMATION
  Report Type: Spontaneous
  Country: FR (occurrence: FR)
  Receive Date: 20180326
  Receipt Date: 20180326
  Transmission Date: 20180509
  Serious: Yes (Hospitalization)
  Sender: FDA-Public Use
  Company Number: PHHY2017FR201907

PATIENT
  Age: 83 Year
  Sex: Female

DRUGS (5)
  1. AMOXICILLIN SODIUM+POTASSIUM CLAVULANATE [Suspect]
     Active Substance: AMOXICILLIN\CLAVULANATE POTASSIUM
     Indication: DIVERTICULITIS
     Dosage: UNK
     Route: 065
  2. CLARITINE [Suspect]
     Active Substance: LORATADINE
     Indication: MULTIPLE ALLERGIES
     Dosage: 1 DF, QD
     Route: 065
  3. CLARITINE [Suspect]
     Active Substance: LORATADINE
     Dosage: 3 DF, QD
     Route: 065
     Dates: start: 20171218
  4. CLAMOXYL (AMOXICILLIN SODIUM) [Concomitant]
     Active Substance: AMOXICILLIN SODIUM
     Indication: TOOTH INFECTION
     Dosage: UNK
  5. TAREG [Concomitant]
     Active Substance: VALSARTAN
     Indication: HYPERTENSION
     Dosage: 1 DF, QD

REACTIONS (7)
  - Product use issue [Unknown]
  - Feeling hot [Unknown]
  - Somnolence [Unknown]
  - Diverticulitis [Unknown]
  - Tooth infection [Unknown]
  - Off label use [Unknown]
  - Vertigo [Unknown]

NARRATIVE: CASE EVENT DATE: 2017
